FAERS Safety Report 23276722 (Version 1)
Quarter: 2023Q4

REPORT INFORMATION
  Report Type: Report from Study
  Country: US (occurrence: US)
  Receive Date: 20231208
  Receipt Date: 20231208
  Transmission Date: 20240110
  Serious: Yes (Other)
  Sender: FDA-Public Use
  Company Number: US-PFIZER INC-PV202300163811

PATIENT
  Age: 68 Year
  Sex: Male

DRUGS (7)
  1. BRAFTOVI [Suspect]
     Active Substance: ENCORAFENIB
     Indication: Metastatic malignant melanoma
     Dosage: 450 MG, 1X/DAY
     Route: 048
     Dates: start: 20230923, end: 202311
  2. BRAFTOVI [Suspect]
     Active Substance: ENCORAFENIB
     Dosage: 4 CAPSULES BY MOUTH ONCE DAILY
     Route: 048
     Dates: start: 20231128
  3. BRAFTOVI [Suspect]
     Active Substance: ENCORAFENIB
     Dosage: 6 CAPSULES BY MOUTH ONCE DAILY
     Route: 048
     Dates: start: 20230923, end: 202311
  4. MEKTOVI [Suspect]
     Active Substance: BINIMETINIB
     Indication: Metastatic malignant melanoma
     Dosage: 30 MG, 2X/DAY
     Route: 048
     Dates: start: 20230923, end: 202311
  5. MEKTOVI [Suspect]
     Active Substance: BINIMETINIB
     Dosage: 2 TABLETS BY MOUTH TWICE A DAY PER MD
     Route: 048
     Dates: start: 20230923
  6. MEKTOVI [Suspect]
     Active Substance: BINIMETINIB
     Dosage: 3 TABLETS TWICE A DAY/3 TABLETS BY MOUTH EVERY 12 HOURS (DATES TAKEN)
     Route: 048
  7. MEKTOVI [Suspect]
     Active Substance: BINIMETINIB
     Dosage: UNK
     Dates: start: 20231128

REACTIONS (5)
  - Dehydration [Recovering/Resolving]
  - Incorrect dose administered [Unknown]
  - Fatigue [Unknown]
  - Pain [Recovering/Resolving]
  - Lethargy [Recovering/Resolving]

NARRATIVE: CASE EVENT DATE: 20230101
